FAERS Safety Report 9356203 (Version 2)
Quarter: 2013Q3

REPORT INFORMATION
  Report Type: Spontaneous
  Country: FR (occurrence: FR)
  Receive Date: 20130619
  Receipt Date: 20130911
  Transmission Date: 20140515
  Serious: Yes (Hospitalization, Other)
  Sender: FDA-Public Use
  Company Number: FR-TEVA-413548ISR

PATIENT
  Age: 89 Year
  Sex: Male
  Weight: 68 kg

DRUGS (6)
  1. FUROSEMIDE TEVA 40 MG [Suspect]
     Indication: CARDIAC FAILURE
     Dosage: 80 MILLIGRAM DAILY;
     Route: 048
     Dates: start: 2012, end: 20130530
  2. CARDENSIEL 5G [Concomitant]
     Dosage: 5 MILLIGRAM DAILY;
     Route: 048
     Dates: start: 2010
  3. OLMETEC 20MG [Concomitant]
     Dosage: 20 MILLIGRAM DAILY;
     Route: 048
     Dates: start: 2010
  4. CRESTOR 20MG [Concomitant]
     Dosage: 20 MILLIGRAM DAILY;
     Route: 048
     Dates: start: 2012
  5. KARDEGIC 75MG [Concomitant]
     Dosage: 75 MILLIGRAM DAILY;
     Route: 048
     Dates: start: 2006
  6. INIPOMP 40MG [Concomitant]
     Dosage: 40 MILLIGRAM DAILY;
     Route: 048
     Dates: start: 2006

REACTIONS (4)
  - Venous thrombosis [Recovered/Resolved]
  - Arteritis [Recovered/Resolved]
  - Somnolence [Recovered/Resolved]
  - Bronchitis [Unknown]
